FAERS Safety Report 6250252-0 (Version None)
Quarter: 2009Q2

REPORT INFORMATION
  Report Type: 
  Country: None (occurrence: None)
  Receive Date: 20090626
  Receipt Date: 20090626
  Transmission Date: 20091009
  Serious: Yes (Other)
  Sender: FDA-Public Use
  Company Number: None

PATIENT
  Sex: Female
  Weight: 86.1834 kg

DRUGS (1)
  1. ADOXA, 150MG, DOAK DERMATOLOGICS [Suspect]
     Indication: ARTHROPOD BITE
     Dosage: 1 CAPSULE 1X DAY ORAL
     Route: 048
     Dates: start: 20090526, end: 20090528

REACTIONS (5)
  - FATIGUE [None]
  - HEADACHE [None]
  - MALAISE [None]
  - NAUSEA [None]
  - PRODUCT SUBSTITUTION ISSUE [None]
